FAERS Safety Report 8916575 (Version 2)
Quarter: 2013Q1

REPORT INFORMATION
  Report Type: Spontaneous
  Country: US (occurrence: US)
  Receive Date: 20121120
  Receipt Date: 20130118
  Transmission Date: 20140127
  Serious: Yes (Hospitalization, Other)
  Sender: FDA-Public Use
  Company Number: US-009507513-1202USA00831

PATIENT
  Sex: 0

DRUGS (8)
  1. FOSAMAX [Suspect]
     Indication: OSTEOPOROSIS
     Dosage: 10 MG, UNK
     Route: 048
     Dates: start: 20000825, end: 20020908
  2. FOSAMAX [Suspect]
     Indication: BONE DENSITY DECREASED
     Dosage: 70 UNK, UNK
     Route: 048
     Dates: start: 20020907, end: 20090709
  3. ALENDRONATE SODIUM [Suspect]
     Indication: OSTEOPOROSIS
     Dosage: 70 MG, UNK
     Route: 048
     Dates: start: 20090719, end: 20091105
  4. ALENDRONATE SODIUM [Suspect]
     Indication: BONE DENSITY DECREASED
  5. VITAMINS (UNSPECIFIED) [Concomitant]
     Dosage: UNK, QD
     Dates: start: 20000825
  6. CHOLECALCIFEROL [Concomitant]
     Dosage: 600 MG, QD
     Dates: start: 20000825
  7. PRINIVIL [Concomitant]
     Indication: HYPERTENSION
     Dosage: UNK
     Dates: start: 2000, end: 201005
  8. FLONASE [Concomitant]
     Indication: HYPERSENSITIVITY
     Dosage: UNK
     Dates: start: 2000

REACTIONS (23)
  - Femur fracture [Recovering/Resolving]
  - Foot fracture [Unknown]
  - Foot operation [Unknown]
  - Procedural haemorrhage [Unknown]
  - Transfusion [Unknown]
  - Procedural haemorrhage [Unknown]
  - Transfusion [Unknown]
  - Fall [Unknown]
  - Intramedullary rod insertion [Unknown]
  - Fracture nonunion [Recovering/Resolving]
  - Intramedullary rod insertion [Unknown]
  - Femur fracture [Unknown]
  - Intramedullary rod insertion [Unknown]
  - Basal cell carcinoma [Unknown]
  - Coronary artery disease [Unknown]
  - Coronary arterial stent insertion [Unknown]
  - Peripheral vascular disorder [Unknown]
  - Obesity [Unknown]
  - Hypercholesterolaemia [Unknown]
  - Osteoarthritis [Unknown]
  - Foot fracture [Unknown]
  - Back pain [Unknown]
  - Drug hypersensitivity [Unknown]
